FAERS Safety Report 5983713-X (Version None)
Quarter: 2008Q4

REPORT INFORMATION
  Report Type: 
  Country: None (occurrence: None)
  Receive Date: 20081208
  Receipt Date: 20080307
  Transmission Date: 20090506
  Serious: No
  Sender: FDA-Public Use
  Company Number: US-AMGEN-KDL268018

PATIENT
  Sex: Female
  Weight: 68.1 kg

DRUGS (6)
  1. ENBREL [Suspect]
     Indication: PSORIASIS
     Route: 058
     Dates: start: 20080221
  2. SYNTHROID [Concomitant]
  3. PAXIL [Concomitant]
  4. ALPRAZOLAM [Concomitant]
  5. CLOBETASOL PROPIONATE [Concomitant]
     Route: 061
  6. BENADRYL [Concomitant]

REACTIONS (3)
  - DIZZINESS [None]
  - FATIGUE [None]
  - HEART RATE DECREASED [None]
